FAERS Safety Report 7827700-5 (Version None)
Quarter: 2011Q4

REPORT INFORMATION
  Report Type: 
  Country: None (occurrence: None)
  Receive Date: 20111020
  Receipt Date: 20111011
  Transmission Date: 20120403
  Serious: Yes (Hospitalization, Other)
  Sender: FDA-Public Use
  Company Number: CA-JNJFOC-20110904844

PATIENT
  Sex: Male
  Weight: 73 kg

DRUGS (3)
  1. IMURAN [Concomitant]
     Route: 048
  2. REMICADE [Suspect]
     Indication: CROHN'S DISEASE
     Dosage: WK0, WK2 AND WK6
     Route: 042
     Dates: start: 20080801
  3. CIPROFLOXACIN [Concomitant]
     Route: 065

REACTIONS (2)
  - ANAL ABSCESS [None]
  - ANAL FISTULA [None]
